FAERS Safety Report 8150447-5 (Version None)
Quarter: 2012Q1

REPORT INFORMATION
  Report Type: 
  Country: None (occurrence: None)
  Receive Date: 20120220
  Receipt Date: 20120207
  Transmission Date: 20120608
  Serious: Yes (Other)
  Sender: FDA-Public Use
  Company Number: US-ELI_LILLY_AND_COMPANY-US201202002313

PATIENT
  Sex: Female

DRUGS (3)
  1. FORTEO [Suspect]
     Indication: OSTEOPOROSIS
     Dosage: 20 UG, QD
     Route: 065
     Dates: start: 20110617
  2. PREDNISONE [Concomitant]
  3. HEPARIN [Concomitant]
     Indication: CATHETERISATION CARDIAC

REACTIONS (3)
  - INJECTION SITE HAEMORRHAGE [None]
  - EMPHYSEMA [None]
  - INJECTION SITE HAEMATOMA [None]
